FAERS Safety Report 6881797-8 (Version None)
Quarter: 2010Q3

REPORT INFORMATION
  Report Type: 
  Country: None (occurrence: None)
  Receive Date: 20100729
  Receipt Date: 20100720
  Transmission Date: 20110219
  Serious: Yes (Life-Threatening, Hospitalization)
  Sender: FDA-Public Use
  Company Number: GR-PFIZER INC-2010090061

PATIENT
  Age: 65 Year
  Sex: Female

DRUGS (5)
  1. MEDROL [Suspect]
     Indication: RHEUMATOID ARTHRITIS
     Dosage: 4 MG, 1X/DAY
     Route: 048
     Dates: start: 20050201
  2. METHOTREXATE [Concomitant]
     Indication: RHEUMATOID ARTHRITIS
     Dosage: 10 MG, 1X WEEKLY
     Route: 048
     Dates: start: 20050201, end: 20100301
  3. HUMIRA [Concomitant]
     Indication: RHEUMATOID ARTHRITIS
     Dosage: 40 MG, EVERY 14 DAYS
     Route: 058
     Dates: start: 20050401, end: 20100301
  4. IDEOS [Concomitant]
     Indication: OSTEOPENIA
     Dosage: 1 DF, 1X/DAY
     Route: 048
     Dates: start: 20050201
  5. PACTENS [Concomitant]
     Indication: HYPERTENSION
     Dosage: 5 MG (0.5 OF 10 MG), 1X/DAY
     Route: 048
     Dates: start: 20090501

REACTIONS (1)
  - LUNG NEOPLASM MALIGNANT [None]
